FAERS Safety Report 25953073 (Version 2)
Quarter: 2025Q4

REPORT INFORMATION
  Report Type: Report from Study
  Country: US (occurrence: US)
  Receive Date: 20251023
  Receipt Date: 20251104
  Transmission Date: 20260118
  Serious: Yes (Hospitalization, Other)
  Sender: FERRING
  Company Number: US-FERRINGPH-2025FE06148

PATIENT

DRUGS (1)
  1. NADOFARAGENE FIRADENOVEC [Suspect]
     Active Substance: NADOFARAGENE FIRADENOVEC
     Indication: Product used for unknown indication
     Dosage: UNK
     Route: 065
     Dates: start: 20250716

REACTIONS (9)
  - Acute kidney injury [Unknown]
  - Blood creatinine increased [Unknown]
  - Hypertonic bladder [Unknown]
  - Groin pain [Unknown]
  - Abdominal pain [Unknown]
  - Dysuria [Unknown]
  - Micturition urgency [Unknown]
  - Bladder spasm [Unknown]
  - Pollakiuria [Unknown]

NARRATIVE: CASE EVENT DATE: 20250701
